FAERS Safety Report 8762755 (Version 2)
Quarter: 2012Q4

REPORT INFORMATION
  Report Type: 
  Country: IE (occurrence: IE)
  Receive Date: 20120828
  Receipt Date: 20121003
  Transmission Date: 20130627
  Serious: Yes (Other)
  Sender: FDA-Public Use
  Company Number: IE-PFIZER INC-2012207313

PATIENT
  Age: 20 Year
  Sex: Female

DRUGS (3)
  1. LYRICA [Suspect]
     Indication: ANXIETY
     Dosage: 25 mg, single
     Route: 048
     Dates: start: 20120719
  2. LYRICA [Suspect]
     Dosage: 25 mg, 2x/day
     Route: 048
     Dates: start: 20120720
  3. OLANZAPINE [Concomitant]
     Indication: ANXIETY
     Dosage: 2.5 mg, UNK
     Route: 048
     Dates: start: 20120716

REACTIONS (2)
  - Electrocardiogram QT prolonged [Recovered/Resolved]
  - Palpitations [Recovered/Resolved]
